FAERS Safety Report 7622547-7 (Version None)
Quarter: 2011Q3

REPORT INFORMATION
  Report Type: 
  Country: None (occurrence: None)
  Receive Date: 20110712
  Receipt Date: 20110705
  Transmission Date: 20111222
  Serious: Yes (Life-Threatening, Hospitalization)
  Sender: FDA-Public Use
  Company Number: 2011SP031380

PATIENT
  Age: 20 Year
  Sex: Male

DRUGS (2)
  1. LORAZEPAM [Concomitant]
  2. REMERON [Suspect]
     Indication: DEPRESSION
     Dosage: 15 MG; QD; PO
     Route: 048
     Dates: start: 20110208, end: 20110221

REACTIONS (5)
  - DEPRESSION [None]
  - SELF INJURIOUS BEHAVIOUR [None]
  - OVERDOSE [None]
  - SUICIDAL IDEATION [None]
  - CONDITION AGGRAVATED [None]
